FAERS Safety Report 8605013-1 (Version None)
Quarter: 2012Q3

REPORT INFORMATION
  Report Type: 
  Country: None (occurrence: None)
  Receive Date: 20120820
  Receipt Date: 20120810
  Transmission Date: 20120928
  Serious: Yes (Hospitalization)
  Sender: FDA-Public Use
  Company Number: AU-SANOFI-AVENTIS-2012SA058983

PATIENT
  Age: 88 Year
  Sex: Male
  Weight: 79 kg

DRUGS (3)
  1. ASPIRIN [Suspect]
     Route: 065
     Dates: end: 20120525
  2. FUROSEMIDE [Suspect]
     Route: 065
     Dates: end: 20120525
  3. ATORVASTATIN [Suspect]
     Route: 065
     Dates: end: 20120524

REACTIONS (2)
  - DERMATITIS BULLOUS [None]
  - PSEUDOPORPHYRIA [None]
